FAERS Safety Report 6480084-X (Version None)
Quarter: 2009Q4

REPORT INFORMATION
  Report Type: 
  Country: None (occurrence: None)
  Receive Date: 20091208
  Receipt Date: 20090807
  Transmission Date: 20100525
  Serious: No
  Sender: FDA-Public Use
  Company Number: US-AMGEN-KDL336501

PATIENT
  Sex: Male
  Weight: 142.1 kg

DRUGS (6)
  1. ENBREL [Suspect]
     Indication: PSORIATIC ARTHROPATHY
     Route: 058
     Dates: start: 20090203
  2. METHOTREXATE [Concomitant]
     Route: 048
  3. ASPIRIN [Concomitant]
  4. METFORMIN HCL [Concomitant]
  5. INDOMETHACIN [Concomitant]
  6. FOLIC ACID [Concomitant]

REACTIONS (6)
  - DIARRHOEA [None]
  - DIZZINESS [None]
  - FAECES DISCOLOURED [None]
  - NAUSEA [None]
  - RASH MACULO-PAPULAR [None]
  - VOMITING [None]
